FAERS Safety Report 5289233-2 (Version None)
Quarter: 2007Q1

REPORT INFORMATION
  Report Type: 
  Country: None (occurrence: None)
  Receive Date: 20070126
  Receipt Date: 20060706
  Transmission Date: 20070707
  Serious: Yes (Hospitalization)
  Sender: FDA-Public Use
  Company Number: 06P-163-0337510-00

PATIENT
  Age: 49 Year
  Sex: Male
  Weight: 95 kg

DRUGS (1)
  1. OMNICEF [Suspect]
     Indication: SKIN INFECTION
     Dosage: 300 MG, 1 IN 1 DAY FOR 10 DAYS,  PER ORAL
     Route: 048
     Dates: start: 20060518, end: 20060527

REACTIONS (2)
  - CLOSTRIDIAL INFECTION [None]
  - COLITIS [None]
